FAERS Safety Report 15596254 (Version 4)
Quarter: 2018Q4

REPORT INFORMATION
  Report Type: Spontaneous
  Country: US (occurrence: US)
  Receive Date: 20181108
  Receipt Date: 20181212
  Transmission Date: 20190205
  Serious: No
  Sender: FDA-Public Use
  Company Number: US-AMGEN-USASP2018155645

PATIENT
  Age: 53 Year
  Sex: Female
  Weight: 59.86 kg

DRUGS (1)
  1. AIMOVIG [Suspect]
     Active Substance: ERENUMAB-AOOE
     Indication: MIGRAINE PROPHYLAXIS
     Dosage: 70 MG, Q4WK
     Route: 030
     Dates: start: 20180819

REACTIONS (3)
  - Gastric disorder [Recovered/Resolved]
  - Incorrect route of product administration [Unknown]
  - Constipation [Recovering/Resolving]

NARRATIVE: CASE EVENT DATE: 2018
